FAERS Safety Report 5332994-4 (Version None)
Quarter: 2007Q1

REPORT INFORMATION
  Report Type: 
  Country: None (occurrence: None)
  Receive Date: 20070306
  Receipt Date: 20061026
  Transmission Date: 20070707
  Serious: Yes (Hospitalization)
  Sender: FDA-Public Use
  Company Number: A03200606470

PATIENT
  Age: 74 Year
  Sex: Female

DRUGS (10)
  1. PLAVIX [Suspect]
     Dosage: 75 MG QD - ORAL
     Route: 048
     Dates: start: 20050101, end: 20061001
  2. TOLTERODINE TARTRATE [Concomitant]
  3. PRAMIPEXOLE DIHYDROCHLORIDE [Concomitant]
  4. MONTELUKAST SODIUM [Concomitant]
  5. ESOMEPRAZOLE MAGNESIUM [Concomitant]
  6. POTASSIUM ACETATE [Concomitant]
  7. ATORVASTATIN CALCIUM [Concomitant]
  8. TRIAMTERENE AND HYDROCHLOROTHIAZIDE [Concomitant]
  9. DILTIAZEM HYDROCHLORIDE [Concomitant]
  10. SALMETEROL + FLUTICASONE [Concomitant]

REACTIONS (3)
  - CEREBROVASCULAR ACCIDENT [None]
  - CYSTITIS [None]
  - PNEUMONIA [None]
